FAERS Safety Report 9838784 (Version 1)
Quarter: 2013Q4

REPORT INFORMATION
  Report Type: Spontaneous
  Country: US (occurrence: None)
  Receive Date: 20131205
  Receipt Date: 20131205
  Transmission Date: 20140711
  Serious: Yes (Other)
  Sender: FDA-Public Use
  Company Number: 163-POMAL-13110909

PATIENT
  Age: 47 Year
  Sex: Male

DRUGS (11)
  1. POMALYST [Suspect]
     Indication: PLASMA CELL MYELOMA
     Route: 048
     Dates: start: 201309
  2. ATIVAN (LORAZEPAM (TABLETS) [Concomitant]
  3. PROTONIX (TABLETS) [Concomitant]
  4. AMLODIPINE BESYLATE (AMLODIPINE BESILATE ) (UNKNOWN) [Concomitant]
  5. METHADONE (METHADONE) [Concomitant]
  6. DEXAMETHASONE (DEXAMETHASONE) [Concomitant]
  7. GABAPENTIN (GABAPENTIN) [Concomitant]
  8. PROCHLORPERAZINE (PROCHLORPERAZINE) [Concomitant]
  9. ZOFRAN (ONDANSETRON HYDROCHLORIDE) (TABLETS) [Concomitant]
  10. BACTRIM DS (BACTRIM) [Concomitant]
  11. ALLOPURINOL (ALLOPURINOL) [Concomitant]

REACTIONS (1)
  - Full blood count decreased [None]
